FAERS Safety Report 8860988 (Version 1)
Quarter: 2012Q4

REPORT INFORMATION
  Report Type: Spontaneous
  Country: DK (occurrence: None)
  Receive Date: 20121023
  Receipt Date: 20121023
  Transmission Date: 20130627
  Serious: Yes (Hospitalization)
  Sender: FDA-Public Use
  Company Number: 2012MA012392

PATIENT
  Age: 47 Year
  Sex: Male

DRUGS (7)
  1. GEMCITABINE HYDROCHLORIDE [Suspect]
     Indication: PANCREATIC CANCER
     Route: 042
     Dates: start: 20120525
  2. IMM-101 [Suspect]
     Indication: PANCREATIC CANCER
     Route: 023
  3. MORPHINE [Concomitant]
  4. ORAMORPH [Concomitant]
  5. OMEPRAZOLE [Concomitant]
  6. METOCLOPRAMIDE [Concomitant]
  7. BISACODYL [Concomitant]

REACTIONS (6)
  - Dizziness [None]
  - Urinary tract infection [None]
  - Haemoglobin decreased [None]
  - Red blood cell count decreased [None]
  - Blood alkaline phosphatase increased [None]
  - Cerebellar infarction [None]
